FAERS Safety Report 8598270-1 (Version None)
Quarter: 2012Q3

REPORT INFORMATION
  Report Type: 
  Country: None (occurrence: None)
  Receive Date: 20120816
  Receipt Date: 20120514
  Transmission Date: 20120928
  Serious: Yes (Other)
  Sender: FDA-Public Use
  Company Number: US-TEVA-331720USA

PATIENT
  Sex: Female
  Weight: 2.497 kg

DRUGS (9)
  1. HYDROXYCHLOROQUINE SULFATE [Concomitant]
  2. AXOTAL [Concomitant]
  3. MULTI-VITAMINS [Concomitant]
  4. VICODIN [Concomitant]
  5. NUVIGIL [Suspect]
     Route: 065
  6. EXCEDRIN (MIGRAINE) [Concomitant]
  7. TOPIRAMATE [Concomitant]
  8. PILOCARPINE HYDROCHLORIDE [Concomitant]
  9. SERTRALINE HYDROCHLORIDE [Concomitant]

REACTIONS (1)
  - SMALL FOR DATES BABY [None]
